FAERS Safety Report 6675546-6 (Version None)
Quarter: 2010Q2

REPORT INFORMATION
  Report Type: 
  Country: None (occurrence: None)
  Receive Date: 20100409
  Receipt Date: 20100326
  Transmission Date: 20101027
  Serious: Yes (Hospitalization)
  Sender: FDA-Public Use
  Company Number: PHHY2010DE19365

PATIENT
  Age: 55 Year
  Sex: Male

DRUGS (1)
  1. RITALIN [Suspect]
     Indication: ATTENTION DEFICIT/HYPERACTIVITY DISORDER
     Dosage: UNK

REACTIONS (3)
  - AKINESIA [None]
  - CHEST PAIN [None]
  - ELECTROCARDIOGRAM T WAVE INVERSION [None]
